FAERS Safety Report 8972914 (Version 3)
Quarter: 2013Q3

REPORT INFORMATION
  Report Type: Spontaneous
  Country: IT (occurrence: IT)
  Receive Date: 20121219
  Receipt Date: 20130926
  Transmission Date: 20140515
  Serious: Yes (Hospitalization, Other)
  Sender: FDA-Public Use
  Company Number: IT-AMGEN-ITASP2012079189

PATIENT
  Age: 94 Year
  Sex: Male

DRUGS (5)
  1. ARANESP [Suspect]
     Indication: ANAEMIA
     Dosage: 40 MUG, UNK
     Route: 058
     Dates: start: 20121010, end: 20121129
  2. RAMIPRIL [Concomitant]
     Dosage: 2.5 MG, UNK
     Route: 048
     Dates: start: 20120401, end: 20121201
  3. LANSOPRAZOLE [Concomitant]
     Dosage: 15 MG, UNK
     Route: 048
     Dates: start: 20121125, end: 20121201
  4. NITROGLYCERINE [Concomitant]
     Dosage: 5 MG, UNK
     Route: 062
     Dates: start: 20121115, end: 20121201
  5. FOLINA                             /00024201/ [Concomitant]
     Dosage: 5 MG, UNK
     Route: 048
     Dates: start: 20121115, end: 20121201

REACTIONS (1)
  - Deep vein thrombosis [Unknown]
